FAERS Safety Report 9512975 (Version 1)
Quarter: 2013Q3

REPORT INFORMATION
  Report Type: Spontaneous
  Country: US (occurrence: US)
  Receive Date: 20130910
  Receipt Date: 20130910
  Transmission Date: 20140515
  Serious: No
  Sender: FDA-Public Use
  Company Number: US-BAYER-2013-109097

PATIENT
  Sex: Male

DRUGS (2)
  1. ALEVE TABLET [Suspect]
     Indication: MYALGIA
     Dosage: 1 DF, BID
     Route: 048
     Dates: start: 20130816
  2. ALEVE TABLET [Suspect]
     Indication: MYALGIA
     Dosage: 2 DF IN MORNING, 1 DF AT NIGHT,UNK
     Route: 048
     Dates: start: 20130816, end: 20130816

REACTIONS (2)
  - Drug ineffective [None]
  - Incorrect drug administration duration [None]
